FAERS Safety Report 7657468-7 (Version None)
Quarter: 2011Q3

REPORT INFORMATION
  Report Type: 
  Country: None (occurrence: None)
  Receive Date: 20110804
  Receipt Date: 20110802
  Transmission Date: 20111222
  Serious: Yes (Hospitalization)
  Sender: FDA-Public Use
  Company Number: CHPA2011US10240

PATIENT
  Age: 60 Year
  Sex: Male

DRUGS (2)
  1. VOLTAREN [Suspect]
     Indication: PAIN IN EXTREMITY
     Dosage: A DAB, AT NIGHT TIME
     Route: 061
     Dates: start: 20100101
  2. ATARAX [Concomitant]
     Indication: MULTIPLE ALLERGIES
     Dosage: 10 MG, TID
     Route: 048

REACTIONS (4)
  - THERAPEUTIC RESPONSE UNEXPECTED [None]
  - OFF LABEL USE [None]
  - WRONG TECHNIQUE IN DRUG USAGE PROCESS [None]
  - HIP SURGERY [None]
